FAERS Safety Report 10183232 (Version 2)
Quarter: 2014Q2

REPORT INFORMATION
  Report Type: Spontaneous
  Country: JP (occurrence: JP)
  Receive Date: 20140520
  Receipt Date: 20140523
  Transmission Date: 20141212
  Serious: Yes (Other)
  Sender: FDA-Public Use
  Company Number: JP-009507513-1405JPN007421

PATIENT
  Age: 77 Year
  Sex: Male

DRUGS (3)
  1. ZETIA TABLETS 10MG [Suspect]
     Dosage: DAILY DOSAGE UNKNOWN
     Route: 048
  2. URINORM [Concomitant]
     Dosage: DAILY DOSAGE UNKNOWN
     Route: 048
  3. HYALEIN [Concomitant]
     Dosage: DAILY DOSAGE UNKNOWN
     Route: 047

REACTIONS (1)
  - Deafness [Unknown]
